FAERS Safety Report 5951941-5 (Version None)
Quarter: 2008Q4

REPORT INFORMATION
  Report Type: 
  Country: None (occurrence: None)
  Receive Date: 20081113
  Receipt Date: 20070919
  Transmission Date: 20090506
  Serious: No
  Sender: FDA-Public Use
  Company Number: A0683040A

PATIENT
  Age: 60 Year
  Sex: Female

DRUGS (4)
  1. COREG [Suspect]
     Indication: HYPERTENSION
     Dosage: 6.25MG TWICE PER DAY
     Route: 048
     Dates: start: 20070824, end: 20070913
  2. COREG CR [Suspect]
     Indication: HYPERTENSION
     Dosage: 10MG PER DAY
     Route: 048
     Dates: start: 20070801, end: 20070917
  3. POTASSIUM CHLORIDE [Concomitant]
  4. IBUPROFEN TABLETS [Concomitant]

REACTIONS (1)
  - RASH [None]
